FAERS Safety Report 23867818 (Version 3)
Quarter: 2025Q2

REPORT INFORMATION
  Report Type: Spontaneous
  Country: CA (occurrence: CA)
  Receive Date: 20240517
  Receipt Date: 20250617
  Transmission Date: 20250716
  Serious: Yes (Hospitalization, Other)
  Sender: NOVO NORDISK
  Company Number: None

PATIENT
  Age: 40 Year
  Sex: Female

DRUGS (7)
  1. SEMAGLUTIDE [Suspect]
     Active Substance: SEMAGLUTIDE
     Indication: Weight control
     Route: 058
  2. REMODULIN [Suspect]
     Active Substance: TREPROSTINIL
     Indication: Pulmonary arterial hypertension
     Route: 042
  3. REMODULIN [Suspect]
     Active Substance: TREPROSTINIL
     Route: 042
  4. EPOPROSTENOL SODIUM [Concomitant]
     Active Substance: EPOPROSTENOL SODIUM
     Indication: Product used for unknown indication
  5. SOTATERCEPT [Concomitant]
     Active Substance: SOTATERCEPT
     Indication: Pulmonary arterial hypertension
  6. UPTRAVI [Concomitant]
     Active Substance: SELEXIPAG
     Indication: Pulmonary arterial hypertension
  7. WEGOVY [Suspect]
     Active Substance: SEMAGLUTIDE

REACTIONS (12)
  - Dyspnoea [Not Recovered/Not Resolved]
  - Endocarditis [Not Recovered/Not Resolved]
  - Exposure to fungus [Not Recovered/Not Resolved]
  - Scar [Not Recovered/Not Resolved]
  - Staphylococcal infection [Not Recovered/Not Resolved]
  - Vascular device infection [Not Recovered/Not Resolved]
  - Weight increased [Not Recovered/Not Resolved]
  - Weight decreased [Not Recovered/Not Resolved]
  - Catheter site thrombosis [Not Recovered/Not Resolved]
  - Subclavian vein stenosis [Not Recovered/Not Resolved]
  - Pseudomonas infection [Not Recovered/Not Resolved]
  - Injection site scar [Not Recovered/Not Resolved]
